FAERS Safety Report 4744727-0 (Version None)
Quarter: 2005Q3

REPORT INFORMATION
  Report Type: 
  Country: None (occurrence: None)
  Receive Date: 20050815
  Receipt Date: 20050726
  Transmission Date: 20060218
  Serious: Yes (Other)
  Sender: FDA-Public Use
  Company Number: 2005AP04076

PATIENT
  Age: 81 Year
  Sex: Female

DRUGS (6)
  1. PARIET [Suspect]
     Indication: REFLUX OESOPHAGITIS
     Route: 048
  2. SELBEX [Suspect]
     Route: 048
     Dates: end: 20050101
  3. DIOVAN [Suspect]
     Route: 048
     Dates: end: 20050101
  4. EPADEL [Concomitant]
     Route: 048
  5. GANATON [Concomitant]
     Route: 048
  6. UNKNOWN DRUG [Concomitant]

REACTIONS (3)
  - ANURIA [None]
  - ORAL INTAKE REDUCED [None]
  - RENAL FAILURE ACUTE [None]
